FAERS Safety Report 24972401 (Version 1)
Quarter: 2025Q1

REPORT INFORMATION
  Report Type: Spontaneous
  Country: NL (occurrence: NL)
  Receive Date: 20250215
  Receipt Date: 20250215
  Transmission Date: 20250409
  Serious: No
  Sender: ALEXION PHARMACEUTICALS
  Company Number: NL-ROCHE-2641267

PATIENT
  Age: 50 Year

DRUGS (5)
  1. ESOMEPRAZOLE MAGNESIUM [Interacting]
     Active Substance: ESOMEPRAZOLE MAGNESIUM
     Indication: Antacid therapy
     Route: 065
  2. PEGASYS [Interacting]
     Active Substance: PEGINTERFERON ALFA-2A
     Indication: Bone cancer
     Dosage: 45 MICROGRAM, Q3W
  3. PEGASYS [Interacting]
     Active Substance: PEGINTERFERON ALFA-2A
     Indication: Polycythaemia vera
  4. RENNIE [Concomitant]
     Route: 065
  5. PLAVIX [Concomitant]
     Active Substance: CLOPIDOGREL BISULFATE
     Route: 065

REACTIONS (22)
  - Drug interaction [Unknown]
  - Tinnitus [Recovered/Resolved]
  - Overgrowth fungal [Unknown]
  - Gingivitis [Unknown]
  - Speech disorder [Unknown]
  - Asthenia [Unknown]
  - Injection site erythema [Unknown]
  - Weight decreased [Unknown]
  - Seborrhoeic dermatitis [Unknown]
  - Muscle disorder [Unknown]
  - Injection site discolouration [Unknown]
  - Dermatitis atopic [Not Recovered/Not Resolved]
  - Tooth erosion [Unknown]
  - Fatigue [Unknown]
  - Joint range of motion decreased [Unknown]
  - Gastrooesophageal reflux disease [Unknown]
  - Constipation [Unknown]
  - Diarrhoea [Unknown]
  - Eructation [Unknown]
  - Dysgeusia [Unknown]
  - Abdominal pain upper [Unknown]
  - Product temperature excursion issue [Unknown]
